FAERS Safety Report 10040731 (Version 1)
Quarter: 2014Q1

REPORT INFORMATION
  Report Type: Spontaneous
  Country: US (occurrence: US)
  Receive Date: 20140327
  Receipt Date: 20140327
  Transmission Date: 20141002
  Serious: No
  Sender: FDA-Public Use
  Company Number: US-BAYER-2014-042647

PATIENT
  Age: 72 Year
  Sex: Female

DRUGS (1)
  1. CLIMARA [Suspect]
     Indication: HOT FLUSH
     Dosage: 0.1 MG ONE PATCH WEEKLY
     Route: 062
     Dates: start: 201402

REACTIONS (1)
  - Asthenia [Not Recovered/Not Resolved]
